FAERS Safety Report 15136770 (Version 2)
Quarter: 2018Q3

REPORT INFORMATION
  Report Type: Spontaneous
  Country: US (occurrence: US)
  Receive Date: 20180712
  Receipt Date: 20180723
  Transmission Date: 20181010
  Serious: Yes (Hospitalization)
  Sender: FDA-Public Use
  Company Number: US-LUNDBECK-DKLU2051281

PATIENT
  Age: 83 Year
  Sex: Female

DRUGS (2)
  1. NORTHERA [Suspect]
     Active Substance: DROXIDOPA
     Indication: ORTHOSTATIC HYPOTENSION
     Route: 048
  2. NORTHERA [Suspect]
     Active Substance: DROXIDOPA
     Indication: PARKINSON^S DISEASE
     Route: 048
     Dates: start: 20180706

REACTIONS (5)
  - Fall [Unknown]
  - Malaise [Unknown]
  - Drug dose omission [Unknown]
  - Vomiting [Recovered/Resolved]
  - Back injury [Unknown]

NARRATIVE: CASE EVENT DATE: 201807
